FAERS Safety Report 5914744-3 (Version None)
Quarter: 2008Q4

REPORT INFORMATION
  Report Type: 
  Country: None (occurrence: None)
  Receive Date: 20081010
  Receipt Date: 20081006
  Transmission Date: 20090506
  Serious: Yes (Other)
  Sender: FDA-Public Use
  Company Number: ES-BRISTOL-MYERS SQUIBB COMPANY-14251318

PATIENT
  Age: 36 Year
  Sex: Female

DRUGS (3)
  1. ABILIFY [Suspect]
     Indication: SCHIZOPHRENIA
     Dosage: 10MG PER DAY
     Route: 048
     Dates: start: 20050623, end: 20051201
  2. RISPERIDONE [Suspect]
     Indication: HYPERPROLACTINAEMIA
     Dates: start: 20051201, end: 20070514
  3. QUETIAPINE FUMARATE [Concomitant]

REACTIONS (4)
  - BREAST CANCER [None]
  - INSOMNIA [None]
  - RESTLESSNESS [None]
  - SCHIZOPHRENIA [None]
